FAERS Safety Report 5279316-5 (Version None)
Quarter: 2007Q1

REPORT INFORMATION
  Report Type: 
  Country: None (occurrence: None)
  Receive Date: 20070328
  Receipt Date: 20060421
  Transmission Date: 20070707
  Serious: No
  Sender: FDA-Public Use
  Company Number: US-AMGEN-US174125

PATIENT
  Sex: Female
  Weight: 65.4 kg

DRUGS (6)
  1. NEULASTA [Suspect]
     Indication: CHEMOTHERAPY
     Route: 058
     Dates: start: 20050714, end: 20050915
  2. TAXOL [Concomitant]
     Route: 065
     Dates: start: 20050713, end: 20050914
  3. CARBOPLATIN [Concomitant]
     Route: 065
     Dates: start: 20050713, end: 20050914
  4. DECADRON [Concomitant]
     Route: 048
     Dates: start: 20050712, end: 20050913
  5. COMPAZINE [Concomitant]
     Route: 065
     Dates: start: 20050620
  6. TYLENOL [Concomitant]
     Route: 065

REACTIONS (3)
  - ARTHRITIS [None]
  - BONE PAIN [None]
  - PAIN IN EXTREMITY [None]
